FAERS Safety Report 4375832-9 (Version None)
Quarter: 2004Q2

REPORT INFORMATION
  Report Type: 
  Country: None (occurrence: None)
  Receive Date: 20040607
  Receipt Date: 20031121
  Transmission Date: 20050107
  Serious: Yes (Hospitalization)
  Sender: FDA-Public Use
  Company Number: S04-DEN-02429-01

PATIENT
  Age: 87 Year
  Sex: Male

DRUGS (5)
  1. EBIXA (MEMANTINE) [Suspect]
     Indication: DEMENTIA
     Dosage: 10 MG QD PO
     Route: 048
     Dates: start: 20030927
  2. TAMBOCOR [Concomitant]
  3. FLUANXOL (FLUPENTIXOL) [Concomitant]
  4. FUROSEMIDE [Concomitant]
  5. CARDIL (DILTIAZEM HYDROCHLORIDE) [Concomitant]

REACTIONS (4)
  - DIZZINESS [None]
  - FALL [None]
  - HEAD INJURY [None]
  - SLEEP WALKING [None]
